FAERS Safety Report 5866252-6 (Version None)
Quarter: 2008Q3

REPORT INFORMATION
  Report Type: 
  Country: None (occurrence: None)
  Receive Date: 20080829
  Receipt Date: 20080821
  Transmission Date: 20090109
  Serious: Yes (Other)
  Sender: FDA-Public Use
  Company Number: GB-PFIZER INC-2008070442

PATIENT
  Age: 42 Year
  Sex: Female
  Weight: 97 kg

DRUGS (1)
  1. CHANTIX [Suspect]
     Indication: SMOKING CESSATION THERAPY
     Route: 048
     Dates: start: 20080520, end: 20080628

REACTIONS (3)
  - AGORAPHOBIA [None]
  - PARANOIA [None]
  - TEARFULNESS [None]
